FAERS Safety Report 19827978 (Version 4)
Quarter: 2022Q2

REPORT INFORMATION
  Report Type: Spontaneous
  Country: JP (occurrence: JP)
  Receive Date: 20210914
  Receipt Date: 20220404
  Transmission Date: 20220721
  Serious: Yes (Other)
  Sender: FDA-Public Use
  Company Number: JP-GSKJP-JP2021JPN192100AA

PATIENT
  Age: 53 Year
  Sex: Female

DRUGS (31)
  1. TRELEGY ELLIPTA [Suspect]
     Active Substance: FLUTICASONE FUROATE\UMECLIDINIUM BROMIDE\VILANTEROL TRIFENATATE
     Indication: Chronic eosinophilic rhinosinusitis
     Dosage: 100 ?G, QD
     Route: 055
     Dates: start: 20190817
  2. TRELEGY ELLIPTA [Suspect]
     Active Substance: FLUTICASONE FUROATE\UMECLIDINIUM BROMIDE\VILANTEROL TRIFENATATE
     Indication: Eosinophilic otitis media
  3. TRELEGY ELLIPTA [Suspect]
     Active Substance: FLUTICASONE FUROATE\UMECLIDINIUM BROMIDE\VILANTEROL TRIFENATATE
     Indication: Asthma
  4. ARNUITY ELLIPTA [Suspect]
     Active Substance: FLUTICASONE FUROATE
     Indication: Chronic eosinophilic rhinosinusitis
     Dosage: 100 ?G, QD
     Dates: start: 20200520
  5. ARNUITY ELLIPTA [Suspect]
     Active Substance: FLUTICASONE FUROATE
     Indication: Eosinophilic otitis media
  6. ARNUITY ELLIPTA [Suspect]
     Active Substance: FLUTICASONE FUROATE
     Indication: Asthma
  7. ARNUITY ELLIPTA [Suspect]
     Active Substance: FLUTICASONE FUROATE
     Indication: Chest discomfort
  8. NUCALA [Suspect]
     Active Substance: MEPOLIZUMAB
     Indication: Chronic eosinophilic rhinosinusitis
     Dosage: 100 MG
     Dates: start: 202007
  9. NUCALA [Suspect]
     Active Substance: MEPOLIZUMAB
     Indication: Eosinophilic otitis media
  10. NUCALA [Suspect]
     Active Substance: MEPOLIZUMAB
     Indication: Asthma
  11. DUPIXENT [Suspect]
     Active Substance: DUPILUMAB
     Indication: Chronic eosinophilic rhinosinusitis
     Dosage: UNK MG
     Route: 058
  12. DUPIXENT [Suspect]
     Active Substance: DUPILUMAB
     Indication: Eosinophilic otitis media
     Dosage: 300 MG
     Route: 058
     Dates: start: 201912
  13. DUPIXENT [Suspect]
     Active Substance: DUPILUMAB
     Indication: Asthma
     Dosage: UNK MG
  14. FASENRA [Concomitant]
     Active Substance: BENRALIZUMAB
     Indication: Chronic eosinophilic rhinosinusitis
  15. FASENRA [Concomitant]
     Active Substance: BENRALIZUMAB
     Indication: Eosinophilic otitis media
  16. FASENRA [Concomitant]
     Active Substance: BENRALIZUMAB
     Indication: Asthma
  17. SYMBICORT [Concomitant]
     Active Substance: BUDESONIDE\FORMOTEROL FUMARATE DIHYDRATE
     Indication: Chronic eosinophilic rhinosinusitis
     Dosage: 8 TIMES DAILY
  18. SYMBICORT [Concomitant]
     Active Substance: BUDESONIDE\FORMOTEROL FUMARATE DIHYDRATE
     Indication: Eosinophilic otitis media
  19. SYMBICORT [Concomitant]
     Active Substance: BUDESONIDE\FORMOTEROL FUMARATE DIHYDRATE
     Indication: Asthma
  20. MONTELUKAST SODIUM [Concomitant]
     Active Substance: MONTELUKAST SODIUM
     Indication: Chronic eosinophilic rhinosinusitis
     Dosage: 10 MG, 1D
  21. MONTELUKAST SODIUM [Concomitant]
     Active Substance: MONTELUKAST SODIUM
     Indication: Eosinophilic otitis media
  22. MONTELUKAST SODIUM [Concomitant]
     Active Substance: MONTELUKAST SODIUM
     Indication: Asthma
  23. SPIRIVA RESPIMAT [Concomitant]
     Active Substance: TIOTROPIUM BROMIDE
     Indication: Chronic eosinophilic rhinosinusitis
     Dosage: 2 DF, 1D
     Route: 055
  24. SPIRIVA RESPIMAT [Concomitant]
     Active Substance: TIOTROPIUM BROMIDE
     Indication: Eosinophilic otitis media
  25. SPIRIVA RESPIMAT [Concomitant]
     Active Substance: TIOTROPIUM BROMIDE
     Indication: Asthma
  26. CELESTAMINE COMBINATION TABLETS [Concomitant]
     Indication: Chronic eosinophilic rhinosinusitis
     Dosage: UNK, QOD
     Route: 048
  27. CELESTAMINE COMBINATION TABLETS [Concomitant]
     Indication: Eosinophilic otitis media
  28. CELESTAMINE COMBINATION TABLETS [Concomitant]
     Indication: Asthma
  29. PREDNISOLONE [Concomitant]
     Active Substance: PREDNISOLONE
     Indication: Chronic eosinophilic rhinosinusitis
     Dosage: 25 MG, 1D
     Route: 048
     Dates: start: 202006
  30. PREDNISOLONE [Concomitant]
     Active Substance: PREDNISOLONE
     Indication: Eosinophilic otitis media
     Dosage: TAPERED BEFORE DISCONTINUATION AT NEXT 5 MONTHS
  31. PREDNISOLONE [Concomitant]
     Active Substance: PREDNISOLONE
     Indication: Asthma

REACTIONS (17)
  - Eosinophilic pneumonia chronic [Recovered/Resolved]
  - Eosinophilic otitis media [Recovered/Resolved]
  - Deafness [Recovered/Resolved]
  - Chronic eosinophilic rhinosinusitis [Recovered/Resolved]
  - Condition aggravated [Recovered/Resolved]
  - Nasal congestion [Recovered/Resolved]
  - Upper-airway cough syndrome [Recovered/Resolved]
  - Tympanic membrane disorder [Recovered/Resolved]
  - Dysphonia [Recovered/Resolved]
  - Otorrhoea [Recovered/Resolved]
  - Eosinophilia [Recovered/Resolved]
  - Parosmia [Recovered/Resolved]
  - Chest discomfort [Recovered/Resolved]
  - Therapeutic product effect incomplete [Unknown]
  - Duplicate therapy error [Unknown]
  - Product use in unapproved indication [Unknown]
  - Off label use [Unknown]

NARRATIVE: CASE EVENT DATE: 20200101
